FAERS Safety Report 5131009-0 (Version None)
Quarter: 2006Q4

REPORT INFORMATION
  Report Type: 
  Country: None (occurrence: None)
  Receive Date: 20061019
  Receipt Date: 20061010
  Transmission Date: 20070319
  Serious: Yes (Other)
  Sender: FDA-Public Use
  Company Number: JP-MERCK-0610USA08513

PATIENT
  Age: 81 Year
  Sex: Male

DRUGS (4)
  1. LIPOVAS [Suspect]
     Indication: HYPERLIPIDAEMIA
     Route: 048
  2. PERINDOPRIL ERBUMINE [Concomitant]
     Route: 048
  3. BUFFERIN [Concomitant]
     Route: 048
  4. ALINAMIN [Concomitant]
     Route: 065

REACTIONS (4)
  - BLOOD CREATINE PHOSPHOKINASE INCREASED [None]
  - HAEMORRHAGE [None]
  - MUSCULOSKELETAL STIFFNESS [None]
  - TREMOR [None]
